FAERS Safety Report 20546362 (Version 1)
Quarter: 2022Q1

REPORT INFORMATION
  Report Type: Spontaneous
  Country: US (occurrence: None)
  Receive Date: 20220303
  Receipt Date: 20220303
  Transmission Date: 20220423
  Serious: No
  Sender: FDA-Public Use
  Company Number: 2022A055689

PATIENT
  Sex: Female
  Weight: 54.4 kg

DRUGS (4)
  1. TAGRISSO [Suspect]
     Active Substance: OSIMERTINIB
     Indication: Non-small cell lung cancer
     Route: 048
     Dates: start: 202106
  2. MEDICATION FOR SEIZURES [Concomitant]
     Indication: Seizure
  3. MEDICATION FOR STROKE [Concomitant]
     Indication: Cerebrovascular accident
  4. MEDICATION FOR BLOOD PRESSURE PROBLEMS [Concomitant]
     Indication: Blood pressure abnormal

REACTIONS (15)
  - Oral mucosal blistering [Recovered/Resolved]
  - Asthenia [Not Recovered/Not Resolved]
  - General physical health deterioration [Not Recovered/Not Resolved]
  - Mobility decreased [Not Recovered/Not Resolved]
  - Communication disorder [Not Recovered/Not Resolved]
  - Oral mucosal erythema [Recovered/Resolved]
  - Contusion [Not Recovered/Not Resolved]
  - Heart rate increased [Recovered/Resolved]
  - Loss of personal independence in daily activities [Not Recovered/Not Resolved]
  - Weight decreased [Not Recovered/Not Resolved]
  - Cognitive disorder [Unknown]
  - Fatigue [Not Recovered/Not Resolved]
  - Dry skin [Unknown]
  - Rash erythematous [Unknown]
  - Product use issue [Not Recovered/Not Resolved]
